FAERS Safety Report 5133017-2 (Version None)
Quarter: 2006Q4

REPORT INFORMATION
  Report Type: 
  Country: None (occurrence: None)
  Receive Date: 20061018
  Receipt Date: 20061006
  Transmission Date: 20070319
  Serious: Yes (Hospitalization)
  Sender: FDA-Public Use
  Company Number: 02100-JPN-06-0472

PATIENT
  Age: 63 Year
  Sex: Male

DRUGS (7)
  1. CILOSTAZOL [Suspect]
     Indication: ARTERIOSCLEROSIS OBLITERANS
     Dosage: 200 MG
     Route: 048
     Dates: start: 20050508, end: 20060906
  2. INSULIN LISPRO                    (GENETICAL RECOMBINATION) [Concomitant]
     Indication: DIABETES MELLITUS
  3. INSULIN HUMAN    (GENETICAL RECOMBINATION) [Concomitant]
     Indication: DIABETES MELLITUS
  4. CANDESARTAN CILEXETIL [Concomitant]
     Indication: HYPERTENSION
  5. CILNIDIPINE [Concomitant]
     Indication: HYPERTENSION
  6. FUROSEMIDE [Concomitant]
     Indication: OEDEMA
  7. LEVOTHYROXINE SODIUM [Concomitant]
     Indication: HYPOTHYROIDISM

REACTIONS (5)
  - CONDITION AGGRAVATED [None]
  - OEDEMA [None]
  - OEDEMA PERIPHERAL [None]
  - PLEURAL EFFUSION [None]
  - SCROTAL OEDEMA [None]
